FAERS Safety Report 15208288 (Version 2)
Quarter: 2018Q4

REPORT INFORMATION
  Report Type: Spontaneous
  Country: US (occurrence: US)
  Receive Date: 20180727
  Receipt Date: 20181005
  Transmission Date: 20190204
  Serious: Yes (Other)
  Sender: FDA-Public Use
  Company Number: US-BAYER-2018-141095

PATIENT
  Age: 25 Year
  Sex: Female
  Weight: 67.12 kg

DRUGS (1)
  1. KYLEENA [Suspect]
     Active Substance: LEVONORGESTREL
     Indication: CONTRACEPTION
     Dosage: 17.5 MCG/24HR, CONT
     Route: 015
     Dates: start: 20180629

REACTIONS (4)
  - Embedded device [None]
  - Abdominal pain lower [None]
  - Vaginal haemorrhage [None]
  - Pelvic pain [None]

NARRATIVE: CASE EVENT DATE: 20180724
